FAERS Safety Report 9339961 (Version 1)
Quarter: 2013Q2

REPORT INFORMATION
  Report Type: Spontaneous
  Country: US (occurrence: None)
  Receive Date: 20130607
  Receipt Date: 20130607
  Transmission Date: 20140414
  Serious: No
  Sender: FDA-Public Use
  Company Number: None

PATIENT
  Age: 82 Year
  Sex: Female

DRUGS (1)
  1. TARCEVA [Suspect]
     Indication: BRONCHIAL CARCINOMA
     Route: 048
     Dates: start: 20130522, end: 20130603

REACTIONS (7)
  - Immobile [None]
  - Lethargy [None]
  - Decreased appetite [None]
  - Photophobia [None]
  - Eye irritation [None]
  - Oral discomfort [None]
  - Oral pain [None]
